FAERS Safety Report 16802102 (Version 7)
Quarter: 2020Q4

REPORT INFORMATION
  Report Type: Report from Study
  Country: US (occurrence: US)
  Receive Date: 20190912
  Receipt Date: 20201224
  Transmission Date: 20210113
  Serious: Yes (Hospitalization)
  Sender: FDA-Public Use
  Company Number: US-ROCHE-2368298

PATIENT
  Age: 48 Year
  Sex: Male
  Weight: 92 kg

DRUGS (39)
  1. MARIJUANA [Concomitant]
     Active Substance: CANNABIS SATIVA SUBSP. INDICA TOP
     Indication: INSOMNIA
     Route: 048
     Dates: start: 201905
  2. ZOFRAN [Concomitant]
     Active Substance: ONDANSETRON HYDROCHLORIDE
     Indication: INFUSION RELATED REACTION
     Route: 042
     Dates: start: 20190723, end: 20190723
  3. NORMAL SALINE [Concomitant]
     Active Substance: SODIUM CHLORIDE
     Route: 042
     Dates: start: 20190723, end: 20190723
  4. NORMAL SALINE [Concomitant]
     Active Substance: SODIUM CHLORIDE
     Route: 042
     Dates: start: 20190820, end: 20190820
  5. NORMAL SALINE [Concomitant]
     Active Substance: SODIUM CHLORIDE
     Route: 042
     Dates: start: 20190827, end: 20190827
  6. CLONAZEPAM. [Concomitant]
     Active Substance: CLONAZEPAM
     Indication: ANXIETY
  7. ZOFRAN [Concomitant]
     Active Substance: ONDANSETRON HYDROCHLORIDE
     Route: 042
     Dates: start: 20190716, end: 20190716
  8. ATIVAN [Concomitant]
     Active Substance: LORAZEPAM
     Indication: INFUSION RELATED REACTION
     Route: 042
     Dates: start: 20190716, end: 20190716
  9. ACETAMINOPHEN. [Concomitant]
     Active Substance: ACETAMINOPHEN
     Route: 048
     Dates: start: 20190716, end: 20190716
  10. CEFEPIME [Concomitant]
     Active Substance: CEFEPIME HYDROCHLORIDE
     Route: 011
     Dates: start: 20190729, end: 20190802
  11. OXYCODONE [Concomitant]
     Active Substance: OXYCODONE
     Indication: TUMOUR PAIN
     Route: 048
     Dates: start: 20190201
  12. DEMEROL [Concomitant]
     Active Substance: MEPERIDINE HYDROCHLORIDE
     Route: 042
     Dates: start: 20190723, end: 20190723
  13. PEPCID [Concomitant]
     Active Substance: FAMOTIDINE
     Indication: INFUSION RELATED REACTION
     Route: 042
     Dates: start: 20190716, end: 20190716
  14. TYLENOL [Concomitant]
     Active Substance: ACETAMINOPHEN
     Indication: INFUSION RELATED REACTION
     Route: 048
     Dates: start: 20190716, end: 20190716
  15. ACETAMINOPHEN. [Concomitant]
     Active Substance: ACETAMINOPHEN
     Route: 048
     Dates: start: 20190723, end: 20190723
  16. ACYCLOVIR. [Concomitant]
     Active Substance: ACYCLOVIR
     Indication: INFECTION PROPHYLAXIS
     Route: 042
     Dates: start: 20190802, end: 20190805
  17. OMEPRAZOLE. [Concomitant]
     Active Substance: OMEPRAZOLE
     Indication: DYSPEPSIA
     Route: 048
     Dates: start: 20190201
  18. NORMAL SALINE [Concomitant]
     Active Substance: SODIUM CHLORIDE
     Route: 042
     Dates: start: 20190716, end: 20190716
  19. ACETAMINOPHEN. [Concomitant]
     Active Substance: ACETAMINOPHEN
     Route: 048
     Dates: start: 20190827, end: 20190827
  20. LORAZEPAM. [Concomitant]
     Active Substance: LORAZEPAM
     Indication: ANXIETY
     Route: 042
     Dates: start: 20190731, end: 20190731
  21. CLONAZEPAM. [Concomitant]
     Active Substance: CLONAZEPAM
     Indication: INSOMNIA
     Route: 048
     Dates: start: 20190728, end: 20190806
  22. ATEZOLIZUMAB. [Suspect]
     Active Substance: ATEZOLIZUMAB
     Indication: METASTATIC NEOPLASM
     Dosage: DOSE OF LAST STUDY DRUG ATEZOLIZUMAB ADMINISTERED PRIOR TO AE ONSET: 1200 MG, 23/JUL/2019
     Route: 041
     Dates: start: 20190716
  23. ATENOLOL. [Concomitant]
     Active Substance: ATENOLOL
     Indication: VENTRICULAR EXTRASYSTOLES
     Route: 048
     Dates: start: 2002
  24. KLONOPIN [Concomitant]
     Active Substance: CLONAZEPAM
     Indication: INSOMNIA
     Route: 048
     Dates: start: 201904
  25. DEMEROL [Concomitant]
     Active Substance: MEPERIDINE HYDROCHLORIDE
     Indication: INFUSION RELATED REACTION
     Route: 042
     Dates: start: 20190716, end: 20190716
  26. TYLENOL WITH CODEINE [Concomitant]
     Active Substance: ACETAMINOPHEN\CODEINE PHOSPHATE
     Route: 048
     Dates: start: 20190806, end: 20190821
  27. NORMAL SALINE [Concomitant]
     Active Substance: SODIUM CHLORIDE
     Route: 042
     Dates: start: 20190813, end: 20190813
  28. MORPHINE [Concomitant]
     Active Substance: MORPHINE
     Indication: TUMOUR PAIN
     Route: 042
     Dates: start: 20190728, end: 20190802
  29. IBUPROFEN. [Concomitant]
     Active Substance: IBUPROFEN
     Indication: INFUSION RELATED REACTION
     Route: 048
     Dates: start: 20190716, end: 20190716
  30. ACETAMINOPHEN. [Concomitant]
     Active Substance: ACETAMINOPHEN
     Route: 048
     Dates: start: 20190813, end: 20190813
  31. ACETAMINOPHEN;CODEINE [Concomitant]
     Active Substance: ACETAMINOPHEN\CODEINE PHOSPHATE
     Indication: TUMOUR PAIN
     Route: 048
     Dates: start: 20190804, end: 20190806
  32. FLUCONAZOLE. [Concomitant]
     Active Substance: FLUCONAZOLE
     Indication: INFECTION PROPHYLAXIS
     Route: 042
     Dates: start: 20190731, end: 20190801
  33. RO7198457 (RNA PERSONALISED CANCER VACCINE) [Suspect]
     Active Substance: RO-7198457
     Indication: METASTATIC NEOPLASM
     Dosage: LAST STUDY DRUG RO7198457 ADMINISTERED PRIOR TO SAE ONSET: 38 UG, 23/JUL/2019
     Route: 042
     Dates: start: 20190716
  34. LEVOTHYROXINE. [Concomitant]
     Active Substance: LEVOTHYROXINE
     Indication: HYPOTHYROIDISM
     Route: 048
     Dates: start: 201712
  35. GABAPENTIN. [Concomitant]
     Active Substance: GABAPENTIN
     Indication: NEUROPATHY PERIPHERAL
     Route: 048
     Dates: start: 201711
  36. PEPCID [Concomitant]
     Active Substance: FAMOTIDINE
     Route: 042
     Dates: start: 20190723, end: 20190723
  37. ATIVAN [Concomitant]
     Active Substance: LORAZEPAM
     Route: 042
     Dates: start: 20190723, end: 20190723
  38. ACETAMINOPHEN. [Concomitant]
     Active Substance: ACETAMINOPHEN
     Route: 048
     Dates: start: 20190820, end: 20190820
  39. VANCOMYCIN [Concomitant]
     Active Substance: VANCOMYCIN
     Indication: INFECTION PROPHYLAXIS
     Route: 042
     Dates: start: 20190728, end: 20190728

REACTIONS (1)
  - Systemic immune activation [Recovered/Resolved]

NARRATIVE: CASE EVENT DATE: 20190728
